FAERS Safety Report 12252190 (Version 1)
Quarter: 2016Q2

REPORT INFORMATION
  Report Type: Spontaneous
  Country: AE (occurrence: AE)
  Receive Date: 20160411
  Receipt Date: 20160411
  Transmission Date: 20160815
  Serious: Yes (Other)
  Sender: FDA-Public Use
  Company Number: PHHY2016AE045633

PATIENT
  Age: 48 Year
  Sex: Male

DRUGS (3)
  1. SORAFENIB [Concomitant]
     Active Substance: SORAFENIB
     Indication: PRODUCT USED FOR UNKNOWN INDICATION
     Dosage: UNK
     Route: 065
  2. AFINITOR [Suspect]
     Active Substance: EVEROLIMUS
     Indication: PRODUCT USED FOR UNKNOWN INDICATION
     Dosage: 5 MG, UNK
     Route: 065
     Dates: start: 201511
  3. AFINITOR [Suspect]
     Active Substance: EVEROLIMUS
     Dosage: 10 MG, UNK
     Route: 065

REACTIONS (9)
  - Metastases to spine [Unknown]
  - Renal mass [Unknown]
  - Back pain [Unknown]
  - Haemoglobin decreased [Unknown]
  - Oedema peripheral [Unknown]
  - Fatigue [Unknown]
  - Metastases to liver [Unknown]
  - Hepatic cyst [Unknown]
  - Metastases to peritoneum [Unknown]
